FAERS Safety Report 21477790 (Version 2)
Quarter: 2023Q1

REPORT INFORMATION
  Report Type: Report from Study
  Country: US (occurrence: US)
  Receive Date: 20221019
  Receipt Date: 20230209
  Transmission Date: 20230417
  Serious: No
  Sender: FDA-Public Use
  Company Number: US-NOVARTISTESTPH-NVSC2022US233252

PATIENT
  Sex: Female

DRUGS (1)
  1. KESIMPTA [Suspect]
     Active Substance: OFATUMUMAB
     Indication: Multiple sclerosis
     Dosage: 20 MG, QMO
     Route: 058
     Dates: start: 202206

REACTIONS (3)
  - Influenza like illness [Unknown]
  - Headache [Unknown]
  - Chills [Unknown]
